FAERS Safety Report 10311966 (Version 1)
Quarter: 2014Q3

REPORT INFORMATION
  Report Type: Spontaneous
  Country: US (occurrence: None)
  Receive Date: 20140715
  Receipt Date: 20140715
  Transmission Date: 20150326
  Serious: No
  Sender: FDA-Public Use
  Company Number: CC14-0638

PATIENT
  Age: 47 Year
  Sex: Female
  Weight: 56.7 kg

DRUGS (1)
  1. IMIQUIMOD. [Suspect]
     Active Substance: IMIQUIMOD
     Indication: SKIN LESION
     Dosage: APPLY 3X PER WEEK
     Dates: start: 20140421, end: 20140429

REACTIONS (3)
  - Application site inflammation [None]
  - Influenza [None]
  - Application site erythema [None]

NARRATIVE: CASE EVENT DATE: 20140422
